FAERS Safety Report 7925895-6 (Version None)
Quarter: 2011Q4

REPORT INFORMATION
  Report Type: 
  Country: None (occurrence: None)
  Receive Date: 20111118
  Receipt Date: 20110414
  Transmission Date: 20120403
  Serious: Yes (Other)
  Sender: FDA-Public Use
  Company Number: US-AMGEN-USASP2011019912

PATIENT
  Age: 37 Year
  Sex: Female

DRUGS (1)
  1. ENBREL [Suspect]
     Indication: ANKYLOSING SPONDYLITIS
     Dosage: 50 MG, QWK
     Dates: start: 20110201

REACTIONS (4)
  - BASAL CELL CARCINOMA [None]
  - UPPER EXTREMITY MASS [None]
  - RESPIRATORY TRACT CONGESTION [None]
  - NASAL CONGESTION [None]
